FAERS Safety Report 6853026-2 (Version None)
Quarter: 2010Q3

REPORT INFORMATION
  Report Type: 
  Country: None (occurrence: None)
  Receive Date: 20100717
  Receipt Date: 20071130
  Transmission Date: 20110219
  Serious: No
  Sender: FDA-Public Use
  Company Number: US-PFIZER INC-2007100665

PATIENT
  Sex: Female
  Weight: 65.9 kg

DRUGS (5)
  1. CHANTIX [Suspect]
     Indication: SMOKING CESSATION THERAPY
     Route: 048
     Dates: start: 20071122
  2. ATACAND [Concomitant]
  3. ACETYLSALICYLIC ACID [Concomitant]
  4. VITAMINS [Concomitant]
  5. CAFFEINE [Concomitant]

REACTIONS (5)
  - DRY EYE [None]
  - HEADACHE [None]
  - NASOPHARYNGITIS [None]
  - POOR QUALITY SLEEP [None]
  - SNEEZING [None]
